FAERS Safety Report 8120650-9 (Version None)
Quarter: 2012Q1

REPORT INFORMATION
  Report Type: 
  Country: None (occurrence: None)
  Receive Date: 20120207
  Receipt Date: 20120131
  Transmission Date: 20120608
  Serious: Yes (Hospitalization)
  Sender: FDA-Public Use
  Company Number: MX-ROCHE-1024868

PATIENT
  Sex: Female
  Weight: 60 kg

DRUGS (2)
  1. TAMOXIFEN CITRATE [Concomitant]
     Route: 048
     Dates: start: 20111220, end: 20120130
  2. HERCEPTIN [Suspect]
     Indication: BREAST CANCER
     Route: 042
     Dates: start: 20110801

REACTIONS (4)
  - BREAST INDURATION [None]
  - BREAST CANCER [None]
  - RADICAL MASTECTOMY [None]
  - PRURITUS [None]
